FAERS Safety Report 13146803 (Version 4)
Quarter: 2018Q2

REPORT INFORMATION
  Report Type: Spontaneous
  Country: DE (occurrence: DE)
  Receive Date: 20170125
  Receipt Date: 20180409
  Transmission Date: 20180711
  Serious: Yes (Other)
  Sender: FDA-Public Use
  Company Number: DE-SUN PHARMACEUTICAL INDUSTRIES LTD-2016RR-131816

PATIENT
  Age: 81 Year
  Sex: Female

DRUGS (6)
  1. RISPERIDONE. [Suspect]
     Active Substance: RISPERIDONE
     Indication: DEPRESSION
     Dosage: 2 MG, UNK
     Route: 065
  2. CEFUROXIME. [Suspect]
     Active Substance: CEFUROXIME
     Indication: NOSOCOMIAL INFECTION
     Dosage: UNK
     Route: 065
  3. RISPERIDONE. [Interacting]
     Active Substance: RISPERIDONE
     Dosage: 4 MG, UNK
     Route: 065
  4. METRONIDAZOLE. [Interacting]
     Active Substance: METRONIDAZOLE
     Indication: PROPHYLAXIS
     Dosage: 1200 MG, DAILY (IN 400MG TABLETS)
     Route: 065
  5. NORTRIPTYLINE [Suspect]
     Active Substance: NORTRIPTYLINE
     Indication: DEPRESSION
     Dosage: 75 MG, UNK
     Route: 065
  6. VENLAFAXINE [Interacting]
     Active Substance: VENLAFAXINE HYDROCHLORIDE
     Indication: DEPRESSION
     Dosage: UP TO 187.5MG DAILY
     Route: 065

REACTIONS (8)
  - Drug ineffective [Unknown]
  - Clostridium difficile colitis [Unknown]
  - Drug level increased [Unknown]
  - Headache [Unknown]
  - Dizziness [Unknown]
  - Drug interaction [Unknown]
  - Hypotension [Unknown]
  - Hyponatraemia [Unknown]
